FAERS Safety Report 21990557 (Version 2)
Quarter: 2023Q1

REPORT INFORMATION
  Report Type: Spontaneous
  Country: NO (occurrence: None)
  Receive Date: 20230214
  Receipt Date: 20230216
  Transmission Date: 20230417
  Serious: Yes (Hospitalization)
  Sender: FDA-Public Use
  Company Number: 2023A030124

PATIENT
  Age: 77 Year
  Sex: Female

DRUGS (10)
  1. LOSEC [Suspect]
     Active Substance: OMEPRAZOLE
     Indication: Antacid therapy
     Route: 048
     Dates: start: 20001212, end: 20230111
  2. ALLOPURINOL [Concomitant]
     Active Substance: ALLOPURINOL
     Dosage: CONTINUED USE OF MEDICINAL PRODUCT
  3. ACETAMINOPHEN\CODEINE PHOSPHATE [Concomitant]
     Active Substance: ACETAMINOPHEN\CODEINE PHOSPHATE
     Dosage: CONTINUED USE OF MEDICINAL PRODUCT
  4. DICLOFENAC [Concomitant]
     Active Substance: DICLOFENAC
     Dosage: CONTINUED USE OF MEDICINAL PRODUCT
  5. LOSARTAN [Concomitant]
     Active Substance: LOSARTAN
     Dosage: CONTINUED USE OF MEDICINAL PRODUCT
  6. LEVOTHYROXINE [Concomitant]
     Active Substance: LEVOTHYROXINE
     Dosage: CONTINUED USE OF MEDICINAL PRODUCT, 75 MICROGRAMS PER INHALATION
  7. LAMOTRIGINE [Concomitant]
     Active Substance: LAMOTRIGINE
     Dosage: CONTINUED USE OF MEDICINAL PRODUCT
  8. METFORMIN\SITAGLIPTIN [Concomitant]
     Active Substance: METFORMIN\SITAGLIPTIN
     Dosage: CONTINUED USE OF MEDICINAL PRODUCT
  9. ATORVASTATIN [Concomitant]
     Active Substance: ATORVASTATIN
     Dosage: CONTINUED USE OF MEDICINAL PRODUCT
  10. METHENAMINE [Concomitant]
     Active Substance: METHENAMINE

REACTIONS (8)
  - Muscle spasms [Recovering/Resolving]
  - Lethargy [Recovering/Resolving]
  - Nausea [Recovering/Resolving]
  - Headache [Recovering/Resolving]
  - Vomiting [Recovering/Resolving]
  - Hypomagnesaemia [Recovering/Resolving]
  - Dizziness [Recovering/Resolving]
  - Depressed mood [Recovering/Resolving]

NARRATIVE: CASE EVENT DATE: 20230101
